FAERS Safety Report 7297046-5 (Version None)
Quarter: 2011Q1

REPORT INFORMATION
  Report Type: 
  Country: None (occurrence: None)
  Receive Date: 20110204
  Receipt Date: 20110120
  Transmission Date: 20110831
  Serious: Yes (Hospitalization)
  Sender: FDA-Public Use
  Company Number: GER/UKI/11/0017184

PATIENT
  Age: 81 Year
  Sex: Male

DRUGS (13)
  1. EZETIMIBE [Suspect]
  2. FLAVOXATE [Concomitant]
  3. FUROSEMIDE [Concomitant]
  4. FLUTICASONE PROPIONATE [Suspect]
  5. ISOSORBIDE MONONITRATE [Concomitant]
  6. METOPROLOL TARTRATE [Concomitant]
  7. CLOPIDOGREL [Suspect]
     Indication: MYOCARDIAL INFARCTION
     Dosage: 75 MG, ORAL
     Route: 048
     Dates: end: 20110106
  8. DIGOXIN [Concomitant]
  9. SALBUTAMOL (SALBUTAMOL) [Concomitant]
  10. FLAVOXATE [Suspect]
  11. FYBOGEL (PLANTAGO OVATA) [Concomitant]
  12. PARACETAMOL (PARACETAMOL) [Concomitant]
  13. GLYCERYL TRINITRATE [Concomitant]

REACTIONS (6)
  - DUODENAL ULCER [None]
  - CARDIAC FAILURE CONGESTIVE [None]
  - UPPER GASTROINTESTINAL HAEMORRHAGE [None]
  - HIATUS HERNIA [None]
  - CONDITION AGGRAVATED [None]
  - GASTRITIS [None]
